FAERS Safety Report 20851122 (Version 1)
Quarter: 2022Q2

REPORT INFORMATION
  Report Type: Spontaneous
  Country: RU (occurrence: RU)
  Receive Date: 20220519
  Receipt Date: 20220519
  Transmission Date: 20220721
  Serious: Yes (Other)
  Sender: FDA-Public Use
  Company Number: RU-BAYER-2022P002620

PATIENT
  Sex: Female
  Weight: 60 kg

DRUGS (1)
  1. YAZ [Suspect]
     Active Substance: DROSPIRENONE\ETHINYL ESTRADIOL
     Indication: Contraception
     Dosage: UNK
     Route: 048
     Dates: start: 2020

REACTIONS (4)
  - Arterial stenosis [None]
  - Headache [None]
  - Speech disorder [None]
  - Confusional state [None]

NARRATIVE: CASE EVENT DATE: 20220501
